FAERS Safety Report 20575835 (Version 3)
Quarter: 2022Q2

REPORT INFORMATION
  Report Type: Spontaneous
  Country: IT (occurrence: IT)
  Receive Date: 20220310
  Receipt Date: 20220408
  Transmission Date: 20220721
  Serious: Yes (Hospitalization)
  Sender: FDA-Public Use
  Company Number: None

PATIENT
  Age: 15 Year
  Sex: Female
  Weight: 64 kg

DRUGS (1)
  1. OMNITROPE [Suspect]
     Active Substance: SOMATROPIN
     Indication: Growth retardation
     Dosage: 2 MG, QD
     Route: 058
     Dates: start: 20180101

REACTIONS (5)
  - Papilloedema [Recovered/Resolved with Sequelae]
  - Dizziness [Recovered/Resolved with Sequelae]
  - Headache [Recovered/Resolved with Sequelae]
  - Intracranial pressure increased [Recovered/Resolved with Sequelae]
  - Idiopathic intracranial hypertension [Recovered/Resolved with Sequelae]

NARRATIVE: CASE EVENT DATE: 20220208
